FAERS Safety Report 8382002-6 (Version None)
Quarter: 2012Q2

REPORT INFORMATION
  Report Type: 
  Country: None (occurrence: None)
  Receive Date: 20120522
  Receipt Date: 20120522
  Transmission Date: 20120825
  Serious: Yes (Hospitalization)
  Sender: FDA-Public Use
  Company Number: None

PATIENT
  Age: 83 Year
  Sex: Female
  Weight: 45 kg

DRUGS (15)
  1. CRANBERRY EXTRACT [Concomitant]
  2. FERROUS GLUCONATE [Concomitant]
  3. DIGOXIN [Concomitant]
  4. MUCINEX [Concomitant]
  5. PROCRIT [Concomitant]
  6. XANAX [Concomitant]
  7. INVANZ [Suspect]
     Indication: PNEUMONIA
     Dosage: 1 GM DAILY IM
     Route: 030
  8. MULTI-VITAMINS [Concomitant]
  9. ALBUTEROL [Concomitant]
  10. PEPCID [Concomitant]
  11. VITAMIN C [Concomitant]
  12. CALCIUM W/D [Concomitant]
  13. CELEXA [Concomitant]
  14. TRAMADOL HCL [Concomitant]
  15. CLARITIN [Concomitant]

REACTIONS (1)
  - CONVULSION [None]
